APPROVED DRUG PRODUCT: METHYLDOPA AND HYDROCHLOROTHIAZIDE
Active Ingredient: HYDROCHLOROTHIAZIDE; METHYLDOPA
Strength: 25MG;250MG
Dosage Form/Route: TABLET;ORAL
Application: A070830 | Product #001
Applicant: SANDOZ INC
Approved: Mar 9, 1987 | RLD: No | RS: No | Type: DISCN